FAERS Safety Report 6287791-2 (Version None)
Quarter: 2009Q3

REPORT INFORMATION
  Report Type: 
  Country: None (occurrence: None)
  Receive Date: 20090729
  Receipt Date: 20090720
  Transmission Date: 20100115
  Serious: Yes (Hospitalization)
  Sender: FDA-Public Use
  Company Number: US-BIOGENIDEC-2009BI006916

PATIENT
  Sex: Female

DRUGS (6)
  1. TYSABRI [Suspect]
     Indication: CROHN'S DISEASE
     Route: 042
     Dates: start: 20080716, end: 20080716
  2. TYSABRI [Suspect]
     Route: 042
     Dates: start: 20081105, end: 20090223
  3. CALTRATE [Concomitant]
     Indication: DRUG USE FOR UNKNOWN INDICATION
  4. REQUIP [Concomitant]
     Indication: DRUG USE FOR UNKNOWN INDICATION
  5. ROZEREM [Concomitant]
     Indication: DRUG USE FOR UNKNOWN INDICATION
  6. PREDNISONE [Concomitant]
     Indication: DRUG USE FOR UNKNOWN INDICATION

REACTIONS (7)
  - EYE MOVEMENT DISORDER [None]
  - GAIT DISTURBANCE [None]
  - HEADACHE [None]
  - HYPOAESTHESIA [None]
  - MUSCULAR WEAKNESS [None]
  - NEUROLOGICAL SYMPTOM [None]
  - VERTIGO [None]
